FAERS Safety Report 14982477 (Version 5)
Quarter: 2018Q3

REPORT INFORMATION
  Report Type: Spontaneous
  Country: US (occurrence: US)
  Receive Date: 20180607
  Receipt Date: 20180726
  Transmission Date: 20181010
  Serious: No
  Sender: FDA-Public Use
  Company Number: US-PFIZER INC-2018231286

PATIENT
  Age: 27 Year
  Sex: Female
  Weight: 63.49 kg

DRUGS (4)
  1. XANAX [Suspect]
     Active Substance: ALPRAZOLAM
     Indication: ANXIETY
     Dosage: 0.25 MG, 3X/DAY
     Route: 048
     Dates: start: 20170921, end: 201801
  2. ZOLOFT [Suspect]
     Active Substance: SERTRALINE HYDROCHLORIDE
     Dosage: 100 MG, 1X/DAY
     Route: 048
     Dates: start: 20170921
  3. ZOLOFT [Suspect]
     Active Substance: SERTRALINE HYDROCHLORIDE
     Dosage: 20 MG, 1X/DAY
     Route: 048
     Dates: start: 20170921
  4. ZOLOFT [Suspect]
     Active Substance: SERTRALINE HYDROCHLORIDE
     Indication: ANXIETY
     Dosage: 100 MG, 1X/DAY
     Route: 048

REACTIONS (7)
  - Personality change [Not Recovered/Not Resolved]
  - Hypomania [Unknown]
  - Somnolence [Recovered/Resolved]
  - Mania [Recovered/Resolved]
  - Abnormal behaviour [Not Recovered/Not Resolved]
  - Anger [Unknown]
  - Mental disorder [Unknown]

NARRATIVE: CASE EVENT DATE: 20170921
